FAERS Safety Report 6107544-5 (Version None)
Quarter: 2009Q1

REPORT INFORMATION
  Report Type: 
  Country: None (occurrence: None)
  Receive Date: 20090309
  Receipt Date: 20090226
  Transmission Date: 20090719
  Serious: Yes (Hospitalization)
  Sender: FDA-Public Use
  Company Number: PHHY2009DE07098

PATIENT
  Sex: Male

DRUGS (11)
  1. TEGRETOL [Suspect]
     Dosage: 900 MG/D
     Route: 048
     Dates: start: 20080601, end: 20081026
  2. DIPIPERON [Concomitant]
     Dosage: 120 MG, QD
     Route: 048
     Dates: start: 20080601
  3. LORAZEPAM [Concomitant]
     Dosage: 3 MG, QD
     Route: 048
     Dates: start: 20080101, end: 20081021
  4. LORAZEPAM [Concomitant]
     Dosage: 6 MG, QD
     Route: 048
     Dates: start: 20081022, end: 20081028
  5. LORAZEPAM [Concomitant]
     Dosage: 3 MG, QD
     Route: 048
     Dates: start: 20081029, end: 20081103
  6. LORAZEPAM [Concomitant]
     Dosage: 2.5 MG, QD
     Route: 048
     Dates: start: 20081104, end: 20081123
  7. LORAZEPAM [Concomitant]
     Dosage: 2 MG, QD
     Route: 048
     Dates: start: 20081124
  8. SEROQUEL [Concomitant]
     Dosage: 675 MG, QD
     Route: 048
     Dates: start: 20080501, end: 20081020
  9. SEROQUEL [Concomitant]
     Dosage: 750 MG, QD
     Route: 048
     Dates: start: 20081021, end: 20081101
  10. SEROQUEL [Concomitant]
     Dosage: 900 MG, QD
     Route: 048
     Dates: start: 20081101
  11. NEXIUM [Concomitant]
     Dosage: 40 MG, QD
     Route: 048
     Dates: start: 20080101

REACTIONS (4)
  - AGGRESSION [None]
  - CHOKING [None]
  - DRUG LEVEL INCREASED [None]
  - NAUSEA [None]
